FAERS Safety Report 9889371 (Version 2)
Quarter: 2014Q1

REPORT INFORMATION
  Report Type: Report from Study
  Country: US (occurrence: US)
  Receive Date: 20140211
  Receipt Date: 20140211
  Transmission Date: 20141002
  Serious: No
  Sender: FDA-Public Use
  Company Number: US-ABBVIE-12P-163-0950245-00

PATIENT
  Age: 18 Year
  Sex: Female

DRUGS (4)
  1. NORVIR TABLETS [Suspect]
     Indication: ANTIRETROVIRAL THERAPY
     Dosage: 100 MG DAILY
     Route: 048
  2. TRUVADA [Suspect]
     Indication: ANTIRETROVIRAL THERAPY
     Dosage: 1 TAB/CAP DAILY
     Route: 048
  3. REYATAZ [Suspect]
     Indication: ANTIRETROVIRAL THERAPY
     Dosage: 400MG DAILY
     Route: 048
  4. FOLATE [Concomitant]
     Indication: PRODUCT USED FOR UNKNOWN INDICATION
     Dosage: FIRST, SECOND AND THIRD TRIMESTER

REACTIONS (1)
  - Gestational hypertension [Unknown]
